FAERS Safety Report 7733902-9 (Version None)
Quarter: 2011Q3

REPORT INFORMATION
  Report Type: 
  Country: None (occurrence: None)
  Receive Date: 20110907
  Receipt Date: 20110316
  Transmission Date: 20111222
  Serious: No
  Sender: FDA-Public Use
  Company Number: US-BAYER-2011-068147

PATIENT
  Age: 60 Year
  Sex: Female
  Weight: 56 kg

DRUGS (10)
  1. OMEGA 3 FISH [Concomitant]
     Dosage: 100 MG, BID
  2. GLUCOSAMINE HYDROCHLORIDE [Concomitant]
     Dosage: UNK UNK, BID
     Route: 048
  3. VICKS INH [Concomitant]
  4. SYMBICORT [Concomitant]
     Dosage: UNK UNK, BID
  5. ALEVE (CAPLET) [Suspect]
     Indication: ARTHRITIS
     Dosage: 2 DF, BID
     Route: 048
     Dates: start: 20110201, end: 20110314
  6. VICKS INH [Concomitant]
     Dosage: UNK UNK, BID
  7. CELEXA [Concomitant]
     Dosage: UNK UNK, QD
  8. CLONAZEPAM [Concomitant]
     Dosage: UNK UNK, TID
     Route: 048
  9. CENTRUM SILVER [Concomitant]
     Dosage: UNK UNK, QD
     Route: 048
  10. FOSAMAX [Concomitant]
     Route: 048

REACTIONS (2)
  - DYSPNOEA [None]
  - RASH MACULAR [None]
